FAERS Safety Report 7934717-9 (Version None)
Quarter: 2011Q4

REPORT INFORMATION
  Report Type: 
  Country: None (occurrence: None)
  Receive Date: 20111122
  Receipt Date: 20111116
  Transmission Date: 20120403
  Serious: Yes (Hospitalization)
  Sender: FDA-Public Use
  Company Number: US-ABBOTT-11P-163-0874676-00

PATIENT
  Sex: Female
  Weight: 79.45 kg

DRUGS (8)
  1. HUMIRA [Suspect]
     Indication: RHEUMATOID ARTHRITIS
     Dates: start: 20110801, end: 20110901
  2. LOVASTATIN [Concomitant]
     Indication: BLOOD CHOLESTEROL INCREASED
  3. CARTIA XT [Concomitant]
     Indication: MYOCARDIAL BRIDGING
  4. ESTROGENIC SUBSTANCE [Concomitant]
     Indication: HORMONE REPLACEMENT THERAPY
  5. ZANTAC [Concomitant]
     Indication: DYSPEPSIA
  6. ASPIRIN [Concomitant]
     Indication: CARDIOVASCULAR DISORDER
  7. FOLIC ACID [Concomitant]
     Indication: ALOPECIA
  8. METHOTREXATE [Concomitant]
     Indication: RHEUMATOID ARTHRITIS

REACTIONS (3)
  - URINARY TRACT INFECTION [None]
  - DYSURIA [None]
  - BACK PAIN [None]
